FAERS Safety Report 9921313 (Version 1)
Quarter: 2014Q1

REPORT INFORMATION
  Report Type: Spontaneous
  Country: IT (occurrence: IT)
  Receive Date: 20140225
  Receipt Date: 20140225
  Transmission Date: 20141002
  Serious: Yes (Other)
  Sender: FDA-Public Use
  Company Number: PHHY2014IT021998

PATIENT
  Age: 4 Month
  Sex: Male

DRUGS (1)
  1. TEGRETOL [Suspect]
     Dosage: 300 MG, ONCE/SINGLE
     Route: 048
     Dates: start: 20140125, end: 20140125

REACTIONS (3)
  - Agitation [Recovering/Resolving]
  - Sinus tachycardia [Recovering/Resolving]
  - Medication error [Recovering/Resolving]
